FAERS Safety Report 8591387-7 (Version None)
Quarter: 2012Q3

REPORT INFORMATION
  Report Type: 
  Country: None (occurrence: None)
  Receive Date: 20120803
  Receipt Date: 20120803
  Transmission Date: 20120928
  Serious: Yes (Disabling)
  Sender: FDA-Public Use
  Company Number: None

PATIENT
  Age: 48 Year
  Sex: Female
  Weight: 68.0396 kg

DRUGS (1)
  1. CIPRO [Suspect]
     Indication: GASTROENTERITIS ESCHERICHIA COLI
     Dosage: 500MG 2X/DAY FOR 5DAYS
     Dates: start: 20110801, end: 20110802

REACTIONS (11)
  - MUSCLE SPASMS [None]
  - BURNING SENSATION [None]
  - INSOMNIA [None]
  - TINNITUS [None]
  - ANXIETY [None]
  - DRUG HYPERSENSITIVITY [None]
  - DEAFNESS [None]
  - TREMOR [None]
  - TENDON PAIN [None]
  - ARTHRALGIA [None]
  - VISION BLURRED [None]
